FAERS Safety Report 21388016 (Version 4)
Quarter: 2023Q2

REPORT INFORMATION
  Report Type: Spontaneous
  Country: US (occurrence: US)
  Receive Date: 20220928
  Receipt Date: 20230623
  Transmission Date: 20230721
  Serious: Yes (Hospitalization)
  Sender: FDA-Public Use
  Company Number: US-SA-SAC20220922001099

PATIENT
  Age: 76 Year
  Sex: Male
  Weight: 102.05 kg

DRUGS (12)
  1. DUPIXENT [Suspect]
     Active Substance: DUPILUMAB
     Indication: Asthma
     Dosage: 200 MG, QOW
     Route: 058
     Dates: start: 20220801
  2. ASPIRIN [Concomitant]
     Active Substance: ASPIRIN
  3. BIOTIN [Concomitant]
     Active Substance: BIOTIN
  4. COLACE [Concomitant]
     Active Substance: DOCUSATE SODIUM
  5. EPIDIOLEX [Concomitant]
     Active Substance: CANNABIDIOL
  6. NITROGLYCERIN [Concomitant]
     Active Substance: NITROGLYCERIN
  7. TYLENOL [Concomitant]
     Active Substance: ACETAMINOPHEN
  8. VITAMIN B12 [Concomitant]
     Active Substance: CYANOCOBALAMIN
  9. DAILY-VITE [Concomitant]
  10. NEURIVAS [Concomitant]
  11. VITAMIN D3 [Concomitant]
     Active Substance: CHOLECALCIFEROL
  12. ALBUTEROL SULFATE [Concomitant]
     Active Substance: ALBUTEROL SULFATE

REACTIONS (9)
  - Infection [Unknown]
  - Tremor [Unknown]
  - Fall [Unknown]
  - Insomnia [Unknown]
  - Asthma [Recovered/Resolved]
  - Wheezing [Unknown]
  - Cough [Unknown]
  - Dyspnoea [Unknown]
  - Drug ineffective [Unknown]

NARRATIVE: CASE EVENT DATE: 20220918
